FAERS Safety Report 4312386-7 (Version None)
Quarter: 2004Q1

REPORT INFORMATION
  Report Type: 
  Country: None (occurrence: None)
  Receive Date: 20040303
  Receipt Date: 20040220
  Transmission Date: 20041129
  Serious: Yes (Death)
  Sender: FDA-Public Use
  Company Number: 163-20785-04020122

PATIENT
  Age: 79 Year
  Sex: Female

DRUGS (1)
  1. THALOMID [Suspect]
     Dosage: 50 MG, QD, ORAL
     Route: 048
     Dates: start: 20031208, end: 20031211

REACTIONS (1)
  - UNEVALUABLE EVENT [None]
